FAERS Safety Report 9341422 (Version 1)
Quarter: 2013Q2

REPORT INFORMATION
  Report Type: Spontaneous
  Country: US (occurrence: None)
  Receive Date: 20130610
  Receipt Date: 20130610
  Transmission Date: 20140414
  Serious: Yes (Hospitalization)
  Sender: FDA-Public Use
  Company Number: None

PATIENT
  Age: 76 Year
  Sex: Male
  Weight: 90.72 kg

DRUGS (2)
  1. AVASTIN [Suspect]
     Indication: RETINOPATHY
     Dates: start: 20130518
  2. AVASTIN [Suspect]
     Indication: MACULAR DEGENERATION
     Dates: start: 20130518

REACTIONS (3)
  - Cerebrovascular accident [None]
  - Eye pain [None]
  - Off label use [None]
